FAERS Safety Report 7121675-2 (Version None)
Quarter: 2010Q4

REPORT INFORMATION
  Report Type: 
  Country: None (occurrence: None)
  Receive Date: 20101124
  Receipt Date: 20100629
  Transmission Date: 20110411
  Serious: No
  Sender: FDA-Public Use
  Company Number: US-PFIZER INC-2010081273

PATIENT
  Sex: Female
  Weight: 63.492 kg

DRUGS (3)
  1. ALDACTONE [Suspect]
     Dosage: 25 MG, 1X/DAY
     Route: 048
     Dates: start: 20100101
  2. MOTRIN [Suspect]
     Indication: PAIN IN EXTREMITY
     Dosage: UNK, 2X/DAY
     Route: 048
     Dates: start: 20100101, end: 20100101
  3. CENTRUM SILVER [Concomitant]
     Indication: VITAMIN SUPPLEMENTATION
     Dosage: UNK, OCCASIONALLY

REACTIONS (1)
  - PAIN IN EXTREMITY [None]
